FAERS Safety Report 4440684-5 (Version None)
Quarter: 2004Q3

REPORT INFORMATION
  Report Type: 
  Country: None (occurrence: None)
  Receive Date: 20040728
  Receipt Date: 20040407
  Transmission Date: 20050211
  Serious: No
  Sender: FDA-Public Use
  Company Number: USA040259531

PATIENT
  Age: 15 Year
  Sex: Male
  Weight: 58 kg

DRUGS (4)
  1. STRATTERA [Suspect]
     Indication: ATTENTION DEFICIT/HYPERACTIVITY DISORDER
     Dosage: 85 MG/DAY
     Dates: start: 20030728
  2. TRILEPTAL [Concomitant]
  3. RISPERDAL [Concomitant]
  4. TRAZODONE HCL [Concomitant]

REACTIONS (2)
  - BLOOD PRESSURE INCREASED [None]
  - PRESCRIBED OVERDOSE [None]
